FAERS Safety Report 6979475-X (Version None)
Quarter: 2010Q3

REPORT INFORMATION
  Report Type: 
  Country: None (occurrence: None)
  Receive Date: 20100910
  Receipt Date: 20100910
  Transmission Date: 20110219
  Serious: No
  Sender: FDA-Public Use
  Company Number: None

PATIENT
  Sex: Female
  Weight: 58.9676 kg

DRUGS (1)
  1. MIRTAZAPINE [Suspect]
     Indication: PAIN
     Dosage: 1 PILL EVERY NIGHT ONCE 047
     Dates: start: 20100520

REACTIONS (1)
  - VOMITING [None]
